FAERS Safety Report 18315000 (Version 1)
Quarter: 2020Q3

REPORT INFORMATION
  Report Type: Spontaneous
  Country: CN (occurrence: CN)
  Receive Date: 20200925
  Receipt Date: 20200925
  Transmission Date: 20201103
  Serious: Yes (Life-Threatening, Other)
  Sender: FDA-Public Use
  Company Number: CN-ASTRAZENECA-2020SF23532

PATIENT
  Age: 12972 Day
  Sex: Female
  Weight: 55 kg

DRUGS (3)
  1. COMPOUND IPRATROPIUM BROMIDE SOLUTION FOR INHALATION [Suspect]
     Active Substance: IPRATROPIUM BROMIDE
     Indication: HEPATIC CANCER
     Route: 055
     Dates: start: 20200917, end: 20200919
  2. SODIUM CHLORIDE. [Concomitant]
     Active Substance: SODIUM CHLORIDE
     Indication: HEPATIC CANCER
     Route: 055
     Dates: start: 20200917, end: 20200918
  3. PULMICORT RESPULES [Suspect]
     Active Substance: BUDESONIDE
     Indication: HEPATIC CANCER
     Route: 055
     Dates: start: 20200917, end: 20200919

REACTIONS (4)
  - Sinus tachycardia [Recovering/Resolving]
  - Pyrexia [Recovered/Resolved]
  - Palpitations [Recovering/Resolving]
  - Headache [Recovering/Resolving]

NARRATIVE: CASE EVENT DATE: 20200918
